FAERS Safety Report 10638600 (Version 7)
Quarter: 2018Q3

REPORT INFORMATION
  Report Type: Report from Study
  Country: GB (occurrence: GB)
  Receive Date: 20141208
  Receipt Date: 20180726
  Transmission Date: 20181010
  Serious: Yes (Hospitalization)
  Sender: FDA-Public Use
  Company Number: GB-AMGEN-GBRCT2014093922

PATIENT
  Age: 43 Year
  Sex: Male

DRUGS (7)
  1. DENOSUMAB [Suspect]
     Active Substance: DENOSUMAB
     Indication: BONE GIANT CELL TUMOUR
     Dosage: 120 MG, Q4WK
     Route: 058
     Dates: start: 20111017, end: 20140407
  2. GENTAMYCIN [Concomitant]
     Active Substance: GENTAMICIN
     Dosage: 120 MG, ONE TIME DOSE
     Route: 042
     Dates: start: 20141217, end: 20141217
  3. PROPOFOL. [Concomitant]
     Active Substance: PROPOFOL
     Dosage: 200 MG, ONE TIME DOSE
     Route: 042
     Dates: start: 20141217, end: 20141217
  4. DIHYDROCODEINE [Concomitant]
     Active Substance: DIHYDROCODEINE
     Dosage: 60 MG, ONE DOSE
     Route: 048
     Dates: start: 20141121
  5. FENTANYL. [Concomitant]
     Active Substance: FENTANYL
     Dosage: 100 MG, ONE TIME DOSE
     Route: 042
     Dates: start: 20141217, end: 20141217
  6. ONDANSETRON [Concomitant]
     Active Substance: ONDANSETRON
     Dosage: 4 MG, ONE TIME DOSE
     Route: 042
     Dates: start: 20141217, end: 20141217
  7. FLUCLOXACILLIN [Concomitant]
     Active Substance: FLUCLOXACILLIN
     Dosage: 1 G, ONE TIME DOSE
     Route: 042
     Dates: start: 20141217, end: 20141217

REACTIONS (2)
  - Bone giant cell tumour [Recovered/Resolved]
  - Debridement [Recovered/Resolved]

NARRATIVE: CASE EVENT DATE: 20141121
